FAERS Safety Report 17058963 (Version 2)
Quarter: 2019Q4

REPORT INFORMATION
  Report Type: Spontaneous
  Country: US (occurrence: US)
  Receive Date: 20191121
  Receipt Date: 20191205
  Transmission Date: 20200122
  Serious: No
  Sender: FDA-Public Use
  Company Number: US-STRONGBRIDGE BIOPHARMA-2019-STR-000309

PATIENT
  Sex: Male

DRUGS (1)
  1. KEVEYIS [Suspect]
     Active Substance: DICHLORPHENAMIDE
     Indication: PRODUCT USED FOR UNKNOWN INDICATION
     Dosage: UNK

REACTIONS (10)
  - Hypermobility syndrome [Unknown]
  - Vision blurred [Unknown]
  - Irritability [Unknown]
  - Amnesia [Unknown]
  - Blood potassium decreased [Unknown]
  - Dizziness [Unknown]
  - Diplopia [Unknown]
  - Asthenia [Unknown]
  - Feeling abnormal [Unknown]
  - Headache [Unknown]
